APPROVED DRUG PRODUCT: NUEDEXTA
Active Ingredient: DEXTROMETHORPHAN HYDROBROMIDE; QUINIDINE SULFATE
Strength: 20MG;10MG
Dosage Form/Route: CAPSULE;ORAL
Application: N021879 | Product #001 | TE Code: AB
Applicant: AVANIR PHARMACEUTICALS INC
Approved: Oct 29, 2010 | RLD: Yes | RS: Yes | Type: RX

PATENTS:
Patent 7659282 | Expires: Aug 13, 2026